FAERS Safety Report 9371940 (Version 1)
Quarter: 2013Q2

REPORT INFORMATION
  Report Type: Report from Study
  Country: US (occurrence: US)
  Receive Date: 20130627
  Receipt Date: 20130627
  Transmission Date: 20140414
  Serious: Yes (Life-Threatening, Other)
  Sender: FDA-Public Use
  Company Number: US-MYLANLABS-2012S1010822

PATIENT
  Age: 44 Year
  Sex: Male
  Weight: 101.15 kg

DRUGS (14)
  1. CLOZAPINE TABLETS [Suspect]
     Indication: SCHIZOPHRENIA
     Route: 048
     Dates: start: 20120430, end: 201205
  2. CLOZAPINE TABLETS [Suspect]
     Indication: PSYCHOTIC DISORDER
     Route: 048
     Dates: start: 20120430, end: 201205
  3. CLOZAPINE TABLETS [Suspect]
     Indication: SCHIZOPHRENIA
     Route: 048
     Dates: start: 20120514, end: 20120521
  4. CLOZAPINE TABLETS [Suspect]
     Indication: PSYCHOTIC DISORDER
     Route: 048
     Dates: start: 20120514, end: 20120521
  5. MULTIVITAMIN [Concomitant]
  6. FOLIC ACID [Concomitant]
  7. DOCUSATE [Concomitant]
  8. PROTONIX [Concomitant]
  9. ARTANE [Concomitant]
  10. MOM [Concomitant]
  11. LAMISIL [Concomitant]
  12. LOPID [Concomitant]
  13. ADVAIR [Concomitant]
     Dosage: 250MG/50MG
  14. VISTARIL [Concomitant]
     Dosage: PRN

REACTIONS (3)
  - Agranulocytosis [Recovered/Resolved]
  - Granulocytopenia [Recovered/Resolved]
  - Leukopenia [Recovered/Resolved]
